FAERS Safety Report 7013083-X (Version None)
Quarter: 2010Q3

REPORT INFORMATION
  Report Type: 
  Country: None (occurrence: None)
  Receive Date: 20100924
  Receipt Date: 20100914
  Transmission Date: 20110219
  Serious: Yes (Other)
  Sender: FDA-Public Use
  Company Number: JP-PFIZER INC-2010116214

PATIENT

DRUGS (5)
  1. LYRICA [Suspect]
     Indication: ARTHRALGIA
     Dosage: UNK
  2. HALCION [Suspect]
     Dosage: UNK
  3. PENTAZOCINE LACTATE [Concomitant]
  4. CELTECT [Concomitant]
  5. TETRAMIDE [Concomitant]
     Dosage: UNK

REACTIONS (4)
  - FACIAL PARESIS [None]
  - FEELING ABNORMAL [None]
  - INSOMNIA [None]
  - SOMNOLENCE [None]
